FAERS Safety Report 5507227-6 (Version None)
Quarter: 2007Q4

REPORT INFORMATION
  Report Type: 
  Country: None (occurrence: None)
  Receive Date: 20071011
  Receipt Date: 20070809
  Transmission Date: 20080405
  Serious: Yes (Other)
  Sender: FDA-Public Use
  Company Number: 2007-00009

PATIENT
  Age: 43 Year
  Sex: Female

DRUGS (1)
  1. SKIN TISSUE HUMAN [Suspect]

REACTIONS (4)
  - ERYTHEMA [None]
  - MEDICAL DEVICE COMPLICATION [None]
  - PAIN [None]
  - SEROMA [None]
